FAERS Safety Report 8732210 (Version 2)
Quarter: 2012Q4

REPORT INFORMATION
  Report Type: 
  Country: US (occurrence: US)
  Receive Date: 20120820
  Receipt Date: 20121025
  Transmission Date: 20130627
  Serious: No
  Sender: FDA-Public Use
  Company Number: US-TEVA-354199USA

PATIENT
  Age: 73 Year
  Sex: Female

DRUGS (4)
  1. AZILECT [Suspect]
     Indication: PARKINSON^S DISEASE
     Dosage: .5 Milligram Daily;
     Route: 048
     Dates: start: 20120814, end: 20120815
  2. SINEMET [Concomitant]
     Indication: PARKINSON^S DISEASE
     Route: 048
  3. METOPROLOL [Concomitant]
     Indication: HEART RATE IRREGULAR
     Route: 048
  4. MIRTAZAPINE [Concomitant]
     Indication: PARKINSON^S DISEASE
     Route: 048

REACTIONS (5)
  - Asthenia [Recovered/Resolved]
  - Nausea [Recovered/Resolved]
  - Agitation [Recovered/Resolved]
  - Dizziness [Recovered/Resolved]
  - Malaise [Recovered/Resolved]
